FAERS Safety Report 21668626 (Version 1)
Quarter: 2022Q4

REPORT INFORMATION
  Report Type: Spontaneous
  Country: US (occurrence: None)
  Receive Date: 20221130
  Receipt Date: 20221130
  Transmission Date: 20230113
  Serious: Yes (Hospitalization)
  Sender: FDA-Public Use
  Company Number: None

PATIENT
  Age: 89 Year
  Sex: Male
  Weight: 78.2 kg

DRUGS (20)
  1. ABIRATERONE [Suspect]
     Active Substance: ABIRATERONE
     Indication: Prostate cancer
     Dosage: FREQUENCY : DAILY;?
     Route: 048
     Dates: start: 202205
  2. BICALUTAMIDE [Concomitant]
     Active Substance: BICALUTAMIDE
  3. COLACE [Concomitant]
     Active Substance: DOCUSATE SODIUM
  4. DULCOLAX NOS [Concomitant]
     Active Substance: BISACODYL OR DOCUSATE SODIUM
  5. FINSTERIDE [Concomitant]
  6. FLEET ENEMA [Concomitant]
     Active Substance: SODIUM PHOSPHATE, DIBASIC\SODIUM PHOSPHATE, MONOBASIC
  7. GLUCAGON [Concomitant]
     Active Substance: GLUCAGON
  8. HYDROCHLOROTHIAZIDE [Concomitant]
     Active Substance: HYDROCHLOROTHIAZIDE
  9. METHADONE [Concomitant]
     Active Substance: METHADONE HYDROCHLORIDE
  10. METOPROLOL [Concomitant]
     Active Substance: METOPROLOL
  11. MIRALAX [Concomitant]
     Active Substance: POLYETHYLENE GLYCOL 3350
  12. NEURONTIN [Concomitant]
     Active Substance: GABAPENTIN
  13. NORCO [Concomitant]
     Active Substance: ACETAMINOPHEN\HYDROCODONE BITARTRATE
  14. OCCUVITE [Concomitant]
  15. SENNA [Concomitant]
     Active Substance: SENNA LEAF\SENNOSIDES\SENNOSIDES A AND B
  16. THIAMINE [Concomitant]
     Active Substance: THIAMINE
  17. TIZANIDINE [Concomitant]
     Active Substance: TIZANIDINE
  18. TYLENOL [Concomitant]
     Active Substance: ACETAMINOPHEN
  19. VITAMIN B COMPLEX [Concomitant]
     Active Substance: CYANOCOBALAMIN\DEXPANTHENOL\NIACINAMIDE\PYRIDOXINE HYDROCHLORIDE\RIBOFLAVIN 5^-PHOSPHATE SODIUM\THIA
  20. WARFARIN [Concomitant]
     Active Substance: WARFARIN

REACTIONS (1)
  - Pneumonia [None]

NARRATIVE: CASE EVENT DATE: 20221118
